FAERS Safety Report 17187738 (Version 4)
Quarter: 2025Q3

REPORT INFORMATION
  Report Type: Spontaneous
  Country: EU (occurrence: EU)
  Receive Date: 20191221
  Receipt Date: 20250710
  Transmission Date: 20251020
  Serious: Yes (Other)
  Sender: AUROBINDO
  Company Number: EU-GILEAD-2019-0441218

PATIENT
  Age: 56 Year
  Sex: Male

DRUGS (7)
  1. RIBAVIRIN [Suspect]
     Active Substance: RIBAVIRIN
     Indication: Chronic hepatitis C
     Route: 065
  2. RIBAVIRIN [Suspect]
     Active Substance: RIBAVIRIN
     Indication: Hepatitis C
  3. PREDNISOLONE [Suspect]
     Active Substance: PREDNISOLONE
     Indication: Glomerulonephritis
     Route: 065
  4. SOFOSBUVIR [Suspect]
     Active Substance: SOFOSBUVIR
     Indication: Chronic hepatitis C
     Route: 065
  5. SOFOSBUVIR [Suspect]
     Active Substance: SOFOSBUVIR
     Indication: Hepatitis C
  6. RITUXIMAB [Suspect]
     Active Substance: RITUXIMAB
     Indication: Lymphoplasmacytoid lymphoma/immunocytoma
     Route: 041
  7. CYCLOPHOSPHAMIDE [Concomitant]
     Active Substance: CYCLOPHOSPHAMIDE
     Indication: Lymphoplasmacytoid lymphoma/immunocytoma
     Route: 065

REACTIONS (9)
  - Vasculitis necrotising [Unknown]
  - Tracheobronchitis [Unknown]
  - Herpes zoster [Unknown]
  - End stage renal disease [Unknown]
  - Cytomegalovirus infection [Unknown]
  - Lymphoplasmacytoid lymphoma/immunocytoma [Unknown]
  - Chronic kidney disease [Unknown]
  - Cytomegalovirus chorioretinitis [Unknown]
  - Infection [Unknown]
